FAERS Safety Report 25787490 (Version 2)
Quarter: 2025Q3

REPORT INFORMATION
  Report Type: Spontaneous
  Country: EU (occurrence: EU)
  Receive Date: 20250910
  Receipt Date: 20250916
  Transmission Date: 20251021
  Serious: Yes (Other)
  Sender: MERCK SHARP & DOHME LLC
  Company Number: EU-009507513-2326146

PATIENT
  Age: 63 Year
  Sex: Female

DRUGS (6)
  1. PEMBROLIZUMAB [Suspect]
     Active Substance: PEMBROLIZUMAB
     Indication: Squamous cell carcinoma of head and neck
     Dates: start: 20230525, end: 20230525
  2. PEMBROLIZUMAB [Suspect]
     Active Substance: PEMBROLIZUMAB
     Indication: Squamous cell carcinoma of head and neck
     Dates: start: 20230816, end: 20230816
  3. PEMBROLIZUMAB [Suspect]
     Active Substance: PEMBROLIZUMAB
     Indication: Squamous cell carcinoma of head and neck
     Dates: start: 20231025, end: 20231025
  4. PEMBROLIZUMAB [Suspect]
     Active Substance: PEMBROLIZUMAB
     Indication: Squamous cell carcinoma of head and neck
     Dates: start: 20250822, end: 20250822
  5. CISPLATIN\FLUOROURACIL [Suspect]
     Active Substance: CISPLATIN\FLUOROURACIL
     Indication: Squamous cell carcinoma of head and neck
     Dates: start: 20230525, end: 20230525
  6. CISPLATIN\FLUOROURACIL [Suspect]
     Active Substance: CISPLATIN\FLUOROURACIL
     Indication: Squamous cell carcinoma of head and neck
     Dates: start: 20230816, end: 20230816

REACTIONS (3)
  - Neutropenia [Unknown]
  - Body mass index increased [Unknown]
  - Pain [Unknown]

NARRATIVE: CASE EVENT DATE: 20230816
